FAERS Safety Report 6664576-6 (Version None)
Quarter: 2010Q2

REPORT INFORMATION
  Report Type: 
  Country: None (occurrence: None)
  Receive Date: 20100401
  Receipt Date: 20100322
  Transmission Date: 20101027
  Serious: Yes (Other)
  Sender: FDA-Public Use
  Company Number: US-ABBOTT-10P-163-0633777-00

PATIENT
  Sex: Female
  Weight: 70.37 kg

DRUGS (2)
  1. HUMIRA [Suspect]
     Indication: CROHN'S DISEASE
     Dates: start: 20090701, end: 20090901
  2. HUMIRA [Suspect]
     Dosage: START DATE 21-MAR-2010
     Dates: start: 20100101, end: 20100201

REACTIONS (5)
  - ABDOMINAL ADHESIONS [None]
  - CROHN'S DISEASE [None]
  - HERNIA REPAIR [None]
  - ILEUS [None]
  - INJECTION SITE REACTION [None]
